FAERS Safety Report 9908526 (Version 1)
Quarter: 2014Q1

REPORT INFORMATION
  Report Type: Spontaneous
  Country: US (occurrence: None)
  Receive Date: 20140212
  Receipt Date: 20140212
  Transmission Date: 20141002
  Serious: Yes (Hospitalization)
  Sender: FDA-Public Use
  Company Number: None

PATIENT
  Age: 62 Year
  Sex: Male
  Weight: 63 kg

DRUGS (1)
  1. DOXORUBICIN [Suspect]
     Indication: NON-HODGKIN^S LYMPHOMA
     Route: 042
     Dates: start: 20130706, end: 20131201

REACTIONS (6)
  - Dyspnoea [None]
  - Fatigue [None]
  - Activities of daily living impaired [None]
  - Muscle spasms [None]
  - Dyspnoea exertional [None]
  - Mobility decreased [None]
